FAERS Safety Report 11629129 (Version 1)
Quarter: 2015Q4

REPORT INFORMATION
  Report Type: Spontaneous
  Country: US (occurrence: None)
  Receive Date: 20151013
  Receipt Date: 20151013
  Transmission Date: 20160304
  Serious: Yes (Other)
  Sender: FDA-Public Use
  Company Number: None

PATIENT
  Age: 35 Year
  Sex: Female
  Weight: 92.99 kg

DRUGS (1)
  1. SERTRALINE [Suspect]
     Active Substance: SERTRALINE HYDROCHLORIDE
     Indication: DEPRESSION
     Route: 048
     Dates: start: 20150729, end: 20151002

REACTIONS (6)
  - Migraine [None]
  - Activities of daily living impaired [None]
  - Chills [None]
  - Confusional state [None]
  - Nasopharyngitis [None]
  - Impaired driving ability [None]

NARRATIVE: CASE EVENT DATE: 20151002
